FAERS Safety Report 20701931 (Version 4)
Quarter: 2022Q2

REPORT INFORMATION
  Report Type: Spontaneous
  Country: JP (occurrence: JP)
  Receive Date: 20220412
  Receipt Date: 20220522
  Transmission Date: 20220721
  Serious: No
  Sender: FDA-Public Use
  Company Number: JP-JNJFOC-20220404300

PATIENT
  Age: 8 Decade
  Sex: Female
  Weight: 54.1 kg

DRUGS (1)
  1. SIMPONI [Suspect]
     Active Substance: GOLIMUMAB
     Indication: Rheumatoid arthritis
     Dosage: DOSE UNKNOWN, ?STRENGTH:50.00 MG / 0.50 ML
     Route: 058

REACTIONS (4)
  - Device deployment issue [Unknown]
  - Injury associated with device [Unknown]
  - Drug delivery system malfunction [Unknown]
  - Needle issue [Unknown]

NARRATIVE: CASE EVENT DATE: 20220329
